FAERS Safety Report 7473712-3 (Version None)
Quarter: 2011Q2

REPORT INFORMATION
  Report Type: 
  Country: None (occurrence: None)
  Receive Date: 20110511
  Receipt Date: 20110504
  Transmission Date: 20111010
  Serious: Yes (Hospitalization)
  Sender: FDA-Public Use
  Company Number: FR-PFIZER INC-2011095623

PATIENT
  Age: 36 Year
  Sex: Female

DRUGS (5)
  1. VALCYTE [Concomitant]
  2. SIROLIMUS [Suspect]
     Indication: IMMUNOSUPPRESSANT DRUG THERAPY
     Dosage: 2 MG, UNK
     Route: 048
     Dates: start: 20070917, end: 20071121
  3. DIPYRIDAMOLE [Suspect]
     Dosage: 2 MG, UNK
     Route: 048
     Dates: start: 20070917
  4. ASPEGIC 325 [Suspect]
     Dosage: 2 MG, UNK
     Route: 048
     Dates: start: 20070917
  5. CELLCEPT [Concomitant]

REACTIONS (1)
  - MELAENA [None]
